FAERS Safety Report 13185162 (Version 1)
Quarter: 2017Q1

REPORT INFORMATION
  Report Type: Spontaneous
  Country: ZA (occurrence: ZA)
  Receive Date: 20170203
  Receipt Date: 20170203
  Transmission Date: 20170428
  Serious: Yes (Hospitalization)
  Sender: FDA-Public Use
  Company Number: PHHY2017ZA013100

PATIENT
  Age: 54 Year
  Sex: Male

DRUGS (2)
  1. GALVUMET [Suspect]
     Active Substance: METFORMIN HYDROCHLORIDE\VILDAGLIPTIN
     Indication: PRODUCT USED FOR UNKNOWN INDICATION
     Dosage: 50 MG, BID
     Route: 048
  2. METFORMIN [Suspect]
     Active Substance: METFORMIN HYDROCHLORIDE
     Indication: PRODUCT USED FOR UNKNOWN INDICATION
     Dosage: UNK
     Route: 065

REACTIONS (5)
  - Depression [Unknown]
  - Vitamin D deficiency [Unknown]
  - Neuropathy peripheral [Recovered/Resolved]
  - Peripheral vascular disorder [Unknown]
  - Glycosylated haemoglobin increased [Unknown]
